FAERS Safety Report 15689927 (Version 2)
Quarter: 2019Q1

REPORT INFORMATION
  Report Type: Spontaneous
  Country: US (occurrence: US)
  Receive Date: 20181205
  Receipt Date: 20190118
  Transmission Date: 20190417
  Serious: No
  Sender: FDA-Public Use
  Company Number: US-ASTRAZENECA-2017SF17127

PATIENT
  Age: 19464 Day
  Sex: Female
  Weight: 70.8 kg

DRUGS (1)
  1. SYMBICORT [Suspect]
     Active Substance: BUDESONIDE\FORMOTEROL FUMARATE DIHYDRATE
     Indication: ASTHMA
     Dosage: SYMBICORT PMDI 160/4.5 MICROGRAMS, TWO INHALATIONS, TWO TIMES A DAY
     Route: 055
     Dates: start: 20171103

REACTIONS (4)
  - Device failure [Unknown]
  - Visual impairment [Unknown]
  - Product dose omission [Unknown]
  - Intentional product misuse [Not Recovered/Not Resolved]

NARRATIVE: CASE EVENT DATE: 20181121
